FAERS Safety Report 18348190 (Version 1)
Quarter: 2020Q4

REPORT INFORMATION
  Report Type: Spontaneous
  Country: US (occurrence: US)
  Receive Date: 20201005
  Receipt Date: 20201005
  Transmission Date: 20210114
  Serious: Yes (Hospitalization)
  Sender: FDA-Public Use
  Company Number: None

PATIENT
  Sex: Female

DRUGS (11)
  1. FOLIC ACID. [Concomitant]
     Active Substance: FOLIC ACID
  2. HYDROCHLOROT [Concomitant]
     Active Substance: HYDROCHLOROTHIAZIDE
  3. LEVOCETIRIZI [Concomitant]
  4. PRAZOSIN. [Concomitant]
     Active Substance: PRAZOSIN
  5. 3ML LLSYRNGE [Concomitant]
  6. CLONAZEPAM. [Concomitant]
     Active Substance: CLONAZEPAM
  7. DULOXETINE. [Concomitant]
     Active Substance: DULOXETINE
  8. LAMOTRIGINE. [Concomitant]
     Active Substance: LAMOTRIGINE
  9. TYLENOL [Concomitant]
     Active Substance: ACETAMINOPHEN
  10. CYANOCOBALAM [Concomitant]
     Active Substance: CYANOCOBALAMIN
  11. RASUVO [Suspect]
     Active Substance: METHOTREXATE SODIUM
     Indication: RHEUMATOID ARTHRITIS
     Dosage: ?          OTHER FREQUENCY:ONCE WEEKLY;?
     Route: 058
     Dates: start: 20190824

REACTIONS (4)
  - Vomiting [None]
  - Nausea [None]
  - Bacterial infection [None]
  - Migraine [None]
